FAERS Safety Report 5130793-X (Version None)
Quarter: 2006Q4

REPORT INFORMATION
  Report Type: 
  Country: None (occurrence: None)
  Receive Date: 20061019
  Receipt Date: 20061018
  Transmission Date: 20070319
  Serious: Yes (Life-Threatening)
  Sender: FDA-Public Use
  Company Number: AU-BRISTOL-MYERS SQUIBB COMPANY-13544903

PATIENT
  Age: 99 Year
  Sex: Male

DRUGS (1)
  1. AVAPRO [Suspect]
     Route: 048

REACTIONS (1)
  - HYPOKALAEMIA [None]
